FAERS Safety Report 18731902 (Version 2)
Quarter: 2021Q2

REPORT INFORMATION
  Report Type: Report from Study
  Country: US (occurrence: US)
  Receive Date: 20210112
  Receipt Date: 20210409
  Transmission Date: 20210717
  Serious: Yes (Hospitalization)
  Sender: FDA-Public Use
  Company Number: US-VERTEX PHARMACEUTICALS-2021-000250

PATIENT
  Age: 10 Year
  Sex: Female

DRUGS (3)
  1. SYMDEKO [Suspect]
     Active Substance: IVACAFTOR\TEZACAFTOR
     Indication: CYSTIC FIBROSIS
     Dosage: 1 TAB(100MG TEZACAFTOR/150MG IVACAFTOR) AM AND 1 TAB(150MG IVACAFTOR) PM
     Route: 048
     Dates: start: 20200723
  2. TOBI PODHALER [Concomitant]
     Active Substance: TOBRAMYCIN
  3. PREDNISONE. [Concomitant]
     Active Substance: PREDNISONE
     Indication: ASTHMA

REACTIONS (4)
  - Aspergillus infection [Recovered/Resolved]
  - Cystic fibrosis related diabetes [Unknown]
  - Blood pressure increased [Unknown]
  - Bronchitis fungal [Recovered/Resolved]

NARRATIVE: CASE EVENT DATE: 202009
